FAERS Safety Report 5193677-7 (Version None)
Quarter: 2006Q4

REPORT INFORMATION
  Report Type: 
  Country: None (occurrence: None)
  Receive Date: 20061222
  Receipt Date: 20061214
  Transmission Date: 20070319
  Serious: Yes (Hospitalization)
  Sender: FDA-Public Use
  Company Number: SU-2006-005641

PATIENT
  Age: 44 Year
  Sex: Male
  Weight: 78.4723 kg

DRUGS (7)
  1. BENICAR [Suspect]
     Indication: HYPERTENSION
     Dosage: 40 MG QD PO
     Route: 048
     Dates: start: 20060801, end: 20061016
  2. FLORINEF [Concomitant]
  3. ZOLOFT [Concomitant]
  4. NORVASC [Concomitant]
  5. PROTONIX [Concomitant]
  6. MAGNESIUM OXIDE [Concomitant]
  7. NEXIUM [Concomitant]

REACTIONS (5)
  - HYPERALDOSTERONISM [None]
  - HYPOKALAEMIA [None]
  - INFLUENZA LIKE ILLNESS [None]
  - RENAL IMPAIRMENT [None]
  - RHABDOMYOLYSIS [None]
